FAERS Safety Report 9548190 (Version 1)
Quarter: 2013Q2

REPORT INFORMATION
  Report Type: Spontaneous
  Country: US (occurrence: None)
  Receive Date: 20130627
  Receipt Date: 20130627
  Transmission Date: 20140414
  Serious: No
  Sender: FDA-Public Use
  Company Number: 1000043620

PATIENT
  Age: 66 Year
  Sex: Male

DRUGS (9)
  1. LINZESS (LINACLOTIDE) [Suspect]
     Indication: CONSTIPATION
     Route: 048
     Dates: start: 20130320
  2. FIBER (POLYCARBOPHIL CALCIUM) [Concomitant]
  3. ENABLEX (DARIFENACIN) [Concomitant]
  4. METFORMIN [Concomitant]
  5. TRAMADOL [Concomitant]
  6. ATORVASTATIN [Concomitant]
  7. DIOVAN (VALSARTAN) [Concomitant]
  8. ALPRAZOLAM [Concomitant]
  9. AMITRYPTYLINE [Concomitant]

REACTIONS (2)
  - Abdominal distension [None]
  - Abdominal discomfort [None]
